FAERS Safety Report 10052559 (Version 1)
Quarter: 2014Q2

REPORT INFORMATION
  Report Type: Spontaneous
  Country: BR (occurrence: BR)
  Receive Date: 20140402
  Receipt Date: 20140402
  Transmission Date: 20141212
  Serious: Yes (Other)
  Sender: FDA-Public Use
  Company Number: BR-ASTRAZENECA-2014SE21875

PATIENT
  Age: 75 Year
  Sex: Female
  Weight: 89 kg

DRUGS (8)
  1. OMEPRAZOLE [Suspect]
     Dosage: DAILY
     Route: 048
  2. LOSARTAN POTASSIUM [Concomitant]
     Route: 048
  3. ASPIRINA [Concomitant]
     Route: 048
  4. ELOTIN [Concomitant]
     Route: 048
  5. BETACARD [Concomitant]
     Route: 048
  6. MIRTAZAPINE [Concomitant]
     Route: 048
  7. CITALOPRAM [Concomitant]
     Route: 048
     Dates: start: 2008
  8. DEPAKOTE [Concomitant]
     Route: 048
     Dates: start: 2008

REACTIONS (7)
  - Myocardial infarction [Recovered/Resolved]
  - Fall [Recovered/Resolved]
  - Laceration [Recovered/Resolved]
  - Nightmare [Recovered/Resolved]
  - Chest pain [Recovering/Resolving]
  - Headache [Recovering/Resolving]
  - Dizziness [Recovering/Resolving]
